FAERS Safety Report 9114380 (Version 2)
Quarter: 2013Q2

REPORT INFORMATION
  Report Type: Report from Study
  Country: FR (occurrence: FR)
  Receive Date: 20130208
  Receipt Date: 20130515
  Transmission Date: 20140414
  Serious: Yes (Hospitalization)
  Sender: FDA-Public Use
  Company Number: FR-ROCHE-1148239

PATIENT
  Age: 75 Year
  Sex: Female
  Weight: 69.8 kg

DRUGS (8)
  1. RITUXIMAB [Suspect]
     Indication: MANTLE CELL LYMPHOMA
     Route: 041
     Dates: start: 20121008
  2. RITUXIMAB [Suspect]
     Route: 041
     Dates: start: 20121009
  3. LEVACT (FRANCE) [Suspect]
     Indication: MANTLE CELL LYMPHOMA
     Route: 042
     Dates: start: 20121008
  4. VELCADE [Suspect]
     Indication: MANTLE CELL LYMPHOMA
     Route: 058
     Dates: start: 20121008
  5. DEXAMETHASONE [Suspect]
     Indication: MANTLE CELL LYMPHOMA
     Route: 065
  6. KARDEGIC [Concomitant]
     Route: 048
     Dates: start: 20121008
  7. VALACICLOVIR [Concomitant]
     Route: 048
     Dates: start: 20121009
  8. SOLU-MEDROL [Concomitant]
     Route: 065
     Dates: start: 20121008

REACTIONS (3)
  - Pulmonary embolism [Recovered/Resolved]
  - Deep vein thrombosis [Not Recovered/Not Resolved]
  - Febrile bone marrow aplasia [Recovered/Resolved]
